FAERS Safety Report 8625470-4 (Version None)
Quarter: 2012Q3

REPORT INFORMATION
  Report Type: 
  Country: None (occurrence: None)
  Receive Date: 20120827
  Receipt Date: 20110928
  Transmission Date: 20120928
  Serious: Yes (Other)
  Sender: FDA-Public Use
  Company Number: US-ROCHE-1000756

PATIENT

DRUGS (2)
  1. AVASTIN [Suspect]
     Indication: COLORECTAL CANCER METASTATIC
     Route: 042
  2. EVEROLIMUS [Suspect]
     Indication: COLORECTAL CANCER METASTATIC
     Route: 048

REACTIONS (26)
  - PROTEINURIA [None]
  - THROMBOCYTOPENIA [None]
  - NEUTROPENIA [None]
  - HYPONATRAEMIA [None]
  - ELECTROCARDIOGRAM QT PROLONGED [None]
  - HYPOPHOSPHATAEMIA [None]
  - HYPERTENSION [None]
  - STOMATITIS [None]
  - RHABDOMYOLYSIS [None]
  - HYPERGLYCAEMIA [None]
  - HYPERLIPIDAEMIA [None]
  - ABSCESS [None]
  - PROCTITIS [None]
  - HYPOVOLAEMIA [None]
  - DIARRHOEA [None]
  - HYPOALBUMINAEMIA [None]
  - NEUROPATHY PERIPHERAL [None]
  - GASTROINTESTINAL HAEMORRHAGE [None]
  - VAGINAL INFECTION [None]
  - AZOTAEMIA [None]
  - BLOOD ALKALINE PHOSPHATASE INCREASED [None]
  - FISTULA [None]
  - FATIGUE [None]
  - INTESTINAL PERFORATION [None]
  - HYPOKALAEMIA [None]
  - HYPERBILIRUBINAEMIA [None]
